FAERS Safety Report 8545772-X (Version None)
Quarter: 2012Q3

REPORT INFORMATION
  Report Type: 
  Country: None (occurrence: None)
  Receive Date: 20120727
  Receipt Date: 20110629
  Transmission Date: 20120928
  Serious: Yes (Hospitalization, Other)
  Sender: FDA-Public Use
  Company Number: US-BAYER-201034822NA

PATIENT
  Age: 29 Year
  Sex: Female
  Weight: 143 kg

DRUGS (20)
  1. HYDRODIURIL [Concomitant]
     Route: 065
  2. VITAMIN TAB [Concomitant]
     Route: 065
  3. NAPROSYN [Concomitant]
     Route: 048
  4. YASMIN [Suspect]
     Indication: PRODUCT USED FOR UNKNOWN INDICATION
     Route: 048
  5. LO/OVRAL [Concomitant]
     Dosage: 30 MCG-0.3 MG
     Route: 048
     Dates: start: 20080324
  6. NORFLEX [Concomitant]
     Route: 065
  7. IRON [Concomitant]
     Indication: MINERAL SUPPLEMENTATION
     Route: 065
  8. TORADOL [Concomitant]
     Indication: PAIN
     Route: 065
  9. MOTRIN [Concomitant]
     Route: 065
  10. YAZ [Suspect]
     Indication: PRODUCT USED FOR UNKNOWN INDICATION
     Route: 048
     Dates: start: 20080101
  11. DROSPIRENONE AND ETHINYL ESTRADIOL [Suspect]
     Indication: PRODUCT USED FOR UNKNOWN INDICATION
     Route: 048
  12. LISINOPRIL [Concomitant]
     Route: 065
  13. FERROUS SULFATE TAB [Concomitant]
     Route: 065
  14. NORVASC [Concomitant]
     Route: 065
  15. UNCODEABLE ^UNCLASSIFIABLE^ [Concomitant]
     Indication: DEHYDRATION
     Dosage: UNK UNK, UNK
     Route: 042
     Dates: start: 20080601
  16. NORFLEX [Concomitant]
     Indication: MUSCULOSKELETAL PAIN
     Dosage: 100 MG, UNK
     Route: 065
  17. AMLODIPINE [Concomitant]
     Dosage: 5 MG (DAILY DOSE), QD, UNKNOWN
     Route: 065
  18. ACETAMINOPHEN [Concomitant]
     Route: 065
  19. ETODOLAC [Concomitant]
     Dosage: BID, PRN
     Route: 048
  20. AMOXICILLIN AND CLAVULANATE POTASSIUM [Concomitant]
     Route: 048
     Dates: start: 20080122, end: 20080131

REACTIONS (7)
  - TRANSIENT ISCHAEMIC ATTACK [None]
  - PARAESTHESIA [None]
  - DYSAESTHESIA [None]
  - FACIAL PAIN [None]
  - HYPERTENSION [None]
  - HEADACHE [None]
  - HEMIPLEGIA [None]
